FAERS Safety Report 11108749 (Version 1)
Quarter: 2015Q2

REPORT INFORMATION
  Report Type: Spontaneous
  Country: GB (occurrence: GB)
  Receive Date: 20150513
  Receipt Date: 20150513
  Transmission Date: 20150821
  Serious: Yes (Other)
  Sender: FDA-Public Use
  Company Number: GB-ACCORD-030447

PATIENT
  Age: 45 Year
  Sex: Male

DRUGS (4)
  1. SULPIRIDE/SULPIRIDE ADAMANTANECARBOXYLAT [Suspect]
     Active Substance: SULPIRIDE
     Indication: SCHIZOPHRENIA
     Dosage: 1000 MG, QD
     Route: 048
  2. LAMOTRIGINE. [Suspect]
     Active Substance: LAMOTRIGINE
     Indication: SCHIZOPHRENIA
     Dosage: 200 MG, QD
     Route: 048
  3. CLOZARIL [Suspect]
     Active Substance: CLOZAPINE
     Indication: SCHIZOPHRENIA
     Dosage: 650 MG, QD
     Route: 048
     Dates: start: 20011011, end: 20150316
  4. SERTRALINE [Suspect]
     Active Substance: SERTRALINE HYDROCHLORIDE
     Indication: SCHIZOPHRENIA
     Route: 048

REACTIONS (2)
  - White blood cell count decreased [Recovered/Resolved]
  - Neutrophil count decreased [Recovered/Resolved]

NARRATIVE: CASE EVENT DATE: 20150316
